FAERS Safety Report 21936206 (Version 1)
Quarter: 2023Q1

REPORT INFORMATION
  Report Type: Spontaneous
  Country: JP (occurrence: JP)
  Receive Date: 20230201
  Receipt Date: 20230201
  Transmission Date: 20230418
  Serious: Yes (Other)
  Sender: FDA-Public Use
  Company Number: JP-MYE-2023M1009721AA

PATIENT
  Sex: Female

DRUGS (1)
  1. ERYTHROCIN [Suspect]
     Active Substance: ERYTHROMYCIN LACTOBIONATE
     Indication: Product used for unknown indication
     Dosage: 200 MILLIGRAM, BID MORNING AND EVENING
     Route: 048

REACTIONS (2)
  - Deafness [Unknown]
  - Underdose [Unknown]
